FAERS Safety Report 7648073-7 (Version None)
Quarter: 2011Q3

REPORT INFORMATION
  Report Type: 
  Country: None (occurrence: None)
  Receive Date: 20110801
  Receipt Date: 20110720
  Transmission Date: 20111222
  Serious: Yes (Other)
  Sender: FDA-Public Use
  Company Number: US-BAYER-2011-063752

PATIENT
  Sex: Female

DRUGS (1)
  1. CITRACAL PETITES [Suspect]
     Route: 048

REACTIONS (2)
  - CHOKING [None]
  - FOREIGN BODY [None]
